FAERS Safety Report 9960101 (Version 1)
Quarter: 2014Q1

REPORT INFORMATION
  Report Type: Report from Study
  Country: US (occurrence: US)
  Receive Date: 20140305
  Receipt Date: 20140305
  Transmission Date: 20141002
  Serious: No
  Sender: FDA-Public Use
  Company Number: US-ABBVIE-13P-163-1103602-00

PATIENT
  Age: 71 Year
  Sex: Male

DRUGS (4)
  1. HUMIRA [Suspect]
     Indication: PSORIASIS
  2. CLONIDINE [Concomitant]
     Indication: BLOOD PRESSURE
  3. HYDROXYZINE [Concomitant]
     Indication: BLOOD PRESSURE
  4. TRIAMTERENE HCTZ [Concomitant]
     Indication: BLOOD PRESSURE
     Dosage: 70/50 MG

REACTIONS (1)
  - Arthropod bite [Unknown]
